FAERS Safety Report 13782108 (Version 1)
Quarter: 2017Q3

REPORT INFORMATION
  Report Type: Spontaneous
  Country: US (occurrence: US)
  Receive Date: 20170724
  Receipt Date: 20170724
  Transmission Date: 20171127
  Serious: No
  Sender: FDA-Public Use
  Company Number: None

PATIENT
  Age: 26 Year
  Sex: Female

DRUGS (1)
  1. VITALITY VI PEEL SINGLE KIT (SUNSCREEN COMPONENT) [Suspect]
     Active Substance: OCTINOXATE\ZINC OXIDE

REACTIONS (2)
  - Pain [None]
  - Burns second degree [None]

NARRATIVE: CASE EVENT DATE: 20170609
